FAERS Safety Report 8897173 (Version 1)
Quarter: 2012Q4

REPORT INFORMATION
  Report Type: 
  Country: US (occurrence: US)
  Receive Date: 20121108
  Receipt Date: 20121108
  Transmission Date: 20130627
  Serious: No
  Sender: FDA-Public Use
  Company Number: US-AMGEN-USASP2012029003

PATIENT
  Age: 53 Year
  Sex: Female
  Weight: 47.62 kg

DRUGS (8)
  1. ENBREL [Suspect]
     Indication: PRODUCT USED FOR UNKNOWN INDICATION
     Dosage: 50 mg, qwk
     Route: 058
  2. XANAX [Concomitant]
     Dosage: 0.25 mg, UNK
  3. PLAQUENIL                          /00072603/ [Concomitant]
     Dosage: 200 mg, UNK
  4. NORVASC [Concomitant]
     Dosage: 10 mg, UNK
  5. VICODIN ES [Concomitant]
  6. DIOVAN [Concomitant]
     Dosage: 160 mg, UNK
  7. PREDNISONE [Concomitant]
     Dosage: 5 mg, UNK
  8. MULTIVITAMIN                       /00097801/ [Concomitant]

REACTIONS (2)
  - Oedema peripheral [Unknown]
  - Cellulitis [Unknown]
